FAERS Safety Report 6358133-9 (Version None)
Quarter: 2009Q3

REPORT INFORMATION
  Report Type: 
  Country: None (occurrence: None)
  Receive Date: 20090916
  Receipt Date: 20090909
  Transmission Date: 20100115
  Serious: Yes (Hospitalization)
  Sender: FDA-Public Use
  Company Number: US-ORACLE-2009S1000300

PATIENT
  Age: 78 Year
  Sex: Female
  Weight: 68 kg

DRUGS (7)
  1. CUBICIN [Suspect]
     Indication: OSTEOMYELITIS
     Route: 042
     Dates: start: 20090604, end: 20090714
  2. CUBICIN [Suspect]
     Route: 042
     Dates: start: 20090604, end: 20090714
  3. LIPITOR [Concomitant]
     Indication: BLOOD CHOLESTEROL INCREASED
     Route: 048
  4. SYNTHROID [Concomitant]
     Indication: HYPOTHYROIDISM
     Route: 048
  5. METOPROLOL TARTRATE [Concomitant]
     Indication: HYPERTENSION
     Route: 048
  6. VALSARTAN [Concomitant]
     Indication: HYPERTENSION
     Route: 048
  7. ACTONEL [Concomitant]
     Indication: OSTEOPOROSIS
     Route: 048

REACTIONS (5)
  - ASTHENIA [None]
  - DYSPNOEA [None]
  - HYPERSENSITIVITY [None]
  - LUNG INFILTRATION [None]
  - LYMPHADENOPATHY [None]
